FAERS Safety Report 19582806 (Version 1)
Quarter: 2021Q3

REPORT INFORMATION
  Report Type: Spontaneous
  Country: US (occurrence: US)
  Receive Date: 20210720
  Receipt Date: 20210720
  Transmission Date: 20211014
  Serious: No
  Sender: FDA-Public Use
  Company Number: None

PATIENT
  Age: 55 Year
  Sex: Female

DRUGS (1)
  1. SYNTHROID [Suspect]
     Active Substance: LEVOTHYROXINE SODIUM
     Indication: HYPOTHYROIDISM
     Dosage: ?          QUANTITY:90 TABLET(S);?
     Route: 048
     Dates: start: 20210609, end: 20210717

REACTIONS (21)
  - Hypoaesthesia [None]
  - Arthralgia [None]
  - Muscular weakness [None]
  - Temperature intolerance [None]
  - Gait disturbance [None]
  - Formication [None]
  - Abdominal distension [None]
  - Weight increased [None]
  - Pain in extremity [None]
  - Lethargy [None]
  - Adverse drug reaction [None]
  - Burning sensation [None]
  - Muscle spasms [None]
  - Myalgia [None]
  - Fatigue [None]
  - Gastrointestinal disorder [None]
  - Irritability [None]
  - Product substitution issue [None]
  - Paraesthesia [None]
  - Increased appetite [None]
  - Hypersomnia [None]

NARRATIVE: CASE EVENT DATE: 20210717
